FAERS Safety Report 16388650 (Version 6)
Quarter: 2019Q4

REPORT INFORMATION
  Report Type: Report from Study
  Country: JP (occurrence: JP)
  Receive Date: 20190604
  Receipt Date: 20191206
  Transmission Date: 20200122
  Serious: Yes (Hospitalization, Other)
  Sender: FDA-Public Use
  Company Number: JP-ASTELLAS-2019JP004916

PATIENT
  Age: 82 Year
  Sex: Male
  Weight: 57 kg

DRUGS (40)
  1. AS3156378 [Suspect]
     Active Substance: AZACITIDINE
     Route: 065
     Dates: start: 20190308, end: 20190314
  2. HIRUDOID                           /00723701/ [Concomitant]
     Active Substance: PENTOSAN POLYSULFATE SODIUM
     Indication: ASTEATOSIS
     Dosage: UNK, AS NEEDED
     Route: 061
     Dates: start: 20140418
  3. COCARL [Concomitant]
     Active Substance: ACETAMINOPHEN
     Dosage: 400 MG/DAY, UNKNOWN FREQ.
     Route: 048
     Dates: start: 20190522
  4. COCARL [Concomitant]
     Active Substance: ACETAMINOPHEN
     Dosage: UNK UNK, UNKNOWN FREQ.
     Route: 048
     Dates: start: 20190613
  5. GENINAX [Concomitant]
     Active Substance: GARENOXACIN MESYLATE
     Indication: PROPHYLAXIS
     Dosage: UNK UNK, UNKNOWN FREQ.
     Route: 048
     Dates: start: 20190320, end: 20190403
  6. ASP2215 [Suspect]
     Active Substance: GILTERITINIB
     Route: 048
     Dates: start: 20190318, end: 20190403
  7. UBRETID [Concomitant]
     Active Substance: DISTIGMINE BROMIDE
     Indication: BENIGN PROSTATIC HYPERPLASIA
     Route: 048
     Dates: start: 1997
  8. ZEFNART [Concomitant]
     Indication: TINEA INFECTION
     Dosage: UNK, AS NEEDED
     Route: 061
     Dates: start: 20140418
  9. GENINAX [Concomitant]
     Active Substance: GARENOXACIN MESYLATE
     Route: 048
     Dates: start: 20190412, end: 20190525
  10. AS3156378 [Suspect]
     Active Substance: AZACITIDINE
     Route: 065
     Dates: start: 20190607, end: 20190612
  11. NEXIUM [Concomitant]
     Active Substance: ESOMEPRAZOLE MAGNESIUM
     Indication: GASTROOESOPHAGEAL REFLUX DISEASE
     Route: 048
     Dates: start: 201810
  12. ZEFNART [Concomitant]
     Indication: TINEA INFECTION
     Dosage: UNK, AS NEEDED
     Route: 061
     Dates: start: 20140418
  13. MIYA-BM [Concomitant]
     Active Substance: CLOSTRIDIUM BUTYRICUM SPORES STRAIN M-55
     Indication: PROPHYLAXIS
     Route: 048
     Dates: start: 20190416
  14. PREDONINE [Concomitant]
     Active Substance: PREDNISOLONE
     Dosage: 10 MG/DAY, UNKNOWN FREQ.
     Route: 048
     Dates: start: 20190408
  15. FLUCONAZOLE. [Concomitant]
     Active Substance: FLUCONAZOLE
     Route: 048
     Dates: start: 20190316
  16. PREDONINE [Concomitant]
     Active Substance: PREDNISOLONE
     Dosage: 10 MG/DAY , UNKNOWN FREQ.
     Route: 048
     Dates: start: 20190323
  17. PREDONINE [Concomitant]
     Active Substance: PREDNISOLONE
     Dosage: 5 MG/DAY , UNKNOWN FREQ.
     Route: 048
     Dates: start: 20190409
  18. FUNGUARD [Concomitant]
     Active Substance: MICAFUNGIN SODIUM
     Indication: PRODUCT USED FOR UNKNOWN INDICATION
     Dosage: UNK UNK, UNKNOWN FREQ.
     Route: 065
     Dates: start: 20190303, end: 20190314
  19. EPINASTINE HYDROCHLORIDE. [Concomitant]
     Active Substance: EPINASTINE HYDROCHLORIDE
     Indication: ECZEMA
     Dosage: UNK UNK, UNKNOWN FREQ.
     Route: 048
  20. COCARL [Concomitant]
     Active Substance: ACETAMINOPHEN
     Indication: PYREXIA
     Dosage: UNK UNK, UNKNOWN FREQ.
     Route: 048
     Dates: start: 20190317
  21. PREDONINE [Concomitant]
     Active Substance: PREDNISOLONE
     Indication: PYREXIA
     Route: 048
     Dates: start: 20140330
  22. PREDONINE [Concomitant]
     Active Substance: PREDNISOLONE
     Dosage: 15 MG/DAY , UNKNOWN FREQ.
     Route: 048
     Dates: start: 20190325
  23. PREDONINE [Concomitant]
     Active Substance: PREDNISOLONE
     Dosage: 20 MG/DAY , UNKNOWN FREQ.
     Route: 048
     Dates: start: 20190326
  24. PREDONINE [Concomitant]
     Active Substance: PREDNISOLONE
     Route: 048
     Dates: start: 20190330
  25. SOLU-CORTEF [Concomitant]
     Active Substance: HYDROCORTISONE SODIUM SUCCINATE
     Indication: PRODUCT USED FOR UNKNOWN INDICATION
     Dosage: UNK UNK, UNKNOWN FREQ.
     Route: 065
     Dates: start: 20190317
  26. ASP2215 [Suspect]
     Active Substance: GILTERITINIB
     Indication: ACUTE MYELOID LEUKAEMIA
     Route: 048
     Dates: start: 20190208, end: 20190303
  27. AS3156378 [Suspect]
     Active Substance: AZACITIDINE
     Route: 065
     Dates: start: 20190412, end: 20190418
  28. BESACOLIN [Concomitant]
     Active Substance: BETHANECHOL CHLORIDE
     Indication: BENIGN PROSTATIC HYPERPLASIA
     Route: 048
     Dates: start: 1997
  29. PREDONINE [Concomitant]
     Active Substance: PREDNISOLONE
     Dosage: 15 MG/DAY , UNKNOWN FREQ.
     Route: 048
     Dates: start: 20190320
  30. CEFTRIAXONE SODIUM. [Concomitant]
     Active Substance: CEFTRIAXONE SODIUM
     Indication: PRODUCT USED FOR UNKNOWN INDICATION
     Dosage: UNK UNK, UNKNOWN FREQ.
     Route: 065
     Dates: start: 20190303, end: 20190313
  31. LEVOFLOXACIN HEMIHYDRATE [Concomitant]
     Active Substance: LEVOFLOXACIN
     Indication: INFECTION PROPHYLAXIS
     Route: 048
     Dates: start: 20190314, end: 20190317
  32. ASP2215 [Suspect]
     Active Substance: GILTERITINIB
     Dates: start: 20190412, end: 20190528
  33. AS3156378 [Suspect]
     Active Substance: AZACITIDINE
     Indication: ACUTE MYELOID LEUKAEMIA
     Route: 065
     Dates: start: 20190208, end: 20190214
  34. AS3156378 [Suspect]
     Active Substance: AZACITIDINE
     Route: 065
     Dates: start: 20190510, end: 20190516
  35. PREDONINE [Concomitant]
     Active Substance: PREDNISOLONE
     Dosage: 20 MG/DAY , UNKNOWN FREQ.
     Route: 048
     Dates: start: 20190317
  36. PREDONINE [Concomitant]
     Active Substance: PREDNISOLONE
     Dosage: 20 MG/DAY , UNKNOWN FREQ.
     Route: 048
     Dates: start: 20190318
  37. CARBOCISTEINE [Concomitant]
     Active Substance: CARBOCYSTEINE
     Indication: BRONCHIECTASIS
     Route: 048
     Dates: start: 20181022
  38. SALICYLIC ACID. [Concomitant]
     Active Substance: SALICYLIC ACID
     Indication: ASTEATOSIS
     Dosage: UNK, AS NEEDED
     Route: 061
     Dates: start: 20140418
  39. EPINASTINE HYDROCHLORIDE. [Concomitant]
     Active Substance: EPINASTINE HYDROCHLORIDE
     Route: 048
     Dates: start: 20190313
  40. FLUCONAZOLE. [Concomitant]
     Active Substance: FLUCONAZOLE
     Indication: INFECTION PROPHYLAXIS
     Dosage: UNK UNK, UNKNOWN FREQ.
     Route: 048

REACTIONS (6)
  - Pyrexia [Recovered/Resolved]
  - Pyrexia [Recovered/Resolved]
  - Pseudomembranous colitis [Recovered/Resolved]
  - Pyrexia [Recovered/Resolved]
  - Pneumonia [Recovered/Resolved]
  - Sepsis [Recovered/Resolved]

NARRATIVE: CASE EVENT DATE: 20190318
